FAERS Safety Report 13546492 (Version 11)
Quarter: 2019Q1

REPORT INFORMATION
  Report Type: Report from Study
  Country: FR (occurrence: FR)
  Receive Date: 20170515
  Receipt Date: 20190218
  Transmission Date: 20190417
  Serious: Yes (Death, Hospitalization, Disabling)
  Sender: FDA-Public Use
  Company Number: FR-ROCHE-1923673

PATIENT
  Age: 64 Year
  Sex: Male
  Weight: 64 kg

DRUGS (14)
  1. DOXORUBICIN [Suspect]
     Active Substance: DOXORUBICIN
     Indication: B-CELL LYMPHOMA
     Dosage: DATE OF LAST DOSE 90 MG ON 11/MAR/2016 AT 13:35?ROUTE AND STARTING DOSE AS PER PROTOCOL
     Route: 042
     Dates: start: 20151127
  2. PREDNISONE. [Suspect]
     Active Substance: PREDNISONE
     Indication: B-CELL LYMPHOMA
     Dosage: DATE OF LAST DOSE: 15/MAR/2016 (100 MG)?ROUTE AND STARTING DOSE AS PER PROTOCOL
     Route: 048
     Dates: start: 20151127
  3. TOPALGIC (FRANCE) [Concomitant]
     Active Substance: TRAMADOL HYDROCHLORIDE
     Indication: HEADACHE
     Route: 065
     Dates: start: 20151204, end: 20160622
  4. RITUXIMAB. [Suspect]
     Active Substance: RITUXIMAB
     Indication: B-CELL LYMPHOMA
     Dosage: MOST RECENT DOSE: 25/APR/2016 (685 MG) AT 12:00?ROUTE AND STARTING DOSE AS PER PROTOCOL
     Route: 042
     Dates: start: 20151127
  5. CYCLOPHOSPHAMIDE. [Suspect]
     Active Substance: CYCLOPHOSPHAMIDE
     Indication: B-CELL LYMPHOMA
     Dosage: MOST RECENT DOSE: 11/MAR/2016 (1350 MG) AT 14:30?ROUTE AND STARTING DOSE AS PER PROTOCOL
     Route: 042
     Dates: start: 20151127
  6. VINCRISTINE [Suspect]
     Active Substance: VINCRISTINE
     Indication: B-CELL LYMPHOMA
     Dosage: DATE OF LAST DOSE: 11/MAR/2016 (2 MG) AT 16:00?ROUTE AND STARTING DOSE AS PER PROTOCOL
     Route: 050
     Dates: start: 20151127
  7. BISEPTINE [Concomitant]
     Active Substance: BENZALKONIUM CHLORIDE\BENZYL ALCOHOL\CHLORHEXIDINE
     Indication: DERMATOSIS
     Route: 065
     Dates: start: 20160517
  8. ZELITREX [Concomitant]
     Active Substance: VALACYCLOVIR HYDROCHLORIDE
     Indication: PSEUDOMONAL BACTERAEMIA
     Route: 065
     Dates: start: 20151201, end: 20170117
  9. ZYLORIC [Concomitant]
     Active Substance: ALLOPURINOL
     Route: 065
     Dates: start: 20151201, end: 20160622
  10. DEXERYL (FRANCE) [Concomitant]
     Active Substance: GLYCERIN\MINERAL OIL\PETROLATUM
     Indication: DERMATOSIS
     Route: 065
     Dates: start: 20160425, end: 20160517
  11. ZELITREX [Concomitant]
     Active Substance: VALACYCLOVIR HYDROCHLORIDE
     Route: 065
     Dates: start: 20170421, end: 20170502
  12. LEDERFOLINE [Concomitant]
     Active Substance: LEUCOVORIN CALCIUM
     Indication: ANAEMIA
     Route: 065
     Dates: start: 20151218
  13. BACTRIM [Concomitant]
     Active Substance: SULFAMETHOXAZOLE\TRIMETHOPRIM
     Dosage: BACTERIAL INFECTIOUS
     Route: 065
     Dates: start: 20151201
  14. VENETOCLAX. [Suspect]
     Active Substance: VENETOCLAX
     Indication: B-CELL LYMPHOMA
     Dosage: MOST RECENT DOSE: 04/MAY/2016 (800 MG)
     Route: 048
     Dates: start: 20151130

REACTIONS (2)
  - Pseudomonal sepsis [Fatal]
  - Neutropenia [Recovered/Resolved]

NARRATIVE: CASE EVENT DATE: 20160606
